FAERS Safety Report 9959399 (Version 1)
Quarter: 2014Q1

REPORT INFORMATION
  Report Type: Spontaneous
  Country: US (occurrence: None)
  Receive Date: 20140228
  Receipt Date: 20140228
  Transmission Date: 20141002
  Serious: No
  Sender: FDA-Public Use
  Company Number: None

PATIENT
  Age: 61 Year
  Sex: Female

DRUGS (3)
  1. PEGASYS [Suspect]
     Indication: CHRONIC HEPATITIS C
     Route: 058
     Dates: start: 20131018
  2. SOVALDI [Concomitant]
  3. RIBSPHERE 200 10/18/13 [Concomitant]

REACTIONS (2)
  - Ammonia increased [None]
  - Coordination abnormal [None]
